FAERS Safety Report 23077114 (Version 1)
Quarter: 2023Q4

REPORT INFORMATION
  Report Type: Spontaneous
  Country: US (occurrence: US)
  Receive Date: 20231018
  Receipt Date: 20231018
  Transmission Date: 20240110
  Serious: Yes (Other)
  Sender: FDA-Public Use
  Company Number: US-COLLEGIUM PHARMACEUTICAL, INC.-20231000832

PATIENT
  Sex: Male

DRUGS (3)
  1. BELBUCA [Suspect]
     Active Substance: BUPRENORPHINE HYDROCHLORIDE
     Indication: Product used for unknown indication
     Dosage: 600 MICROGRAM, QD (IN THE MORNING)
     Route: 002
  2. DEXTROAMPHETAMINE [Suspect]
     Active Substance: DEXTROAMPHETAMINE
     Indication: Product used for unknown indication
     Dosage: 60 MILLIGRAM, QD (IN THE MORNING)
     Route: 065
  3. HYDROCODONE [Suspect]
     Active Substance: HYDROCODONE
     Indication: Product used for unknown indication
     Dosage: 20 MILLIGRAM, QD (AT NIGHT)
     Route: 065

REACTIONS (3)
  - Paranoia [Not Recovered/Not Resolved]
  - Delusion [Not Recovered/Not Resolved]
  - Off label use [Unknown]
